FAERS Safety Report 15730086 (Version 1)
Quarter: 2018Q4

REPORT INFORMATION
  Report Type: Report from Study
  Country: US (occurrence: US)
  Receive Date: 20181217
  Receipt Date: 20181217
  Transmission Date: 20190205
  Serious: Yes (Other)
  Sender: FDA-Public Use
  Company Number: US-SA-2017SA124147

PATIENT
  Age: 63 Year
  Sex: Female

DRUGS (2)
  1. INSULIN GLARGINE [Suspect]
     Active Substance: INSULIN GLARGINE
     Dosage: 54 U, BID
     Route: 058
  2. INSULIN GLARGINE [Suspect]
     Active Substance: INSULIN GLARGINE
     Indication: TYPE 2 DIABETES MELLITUS
     Dosage: UNK UNK, BID
     Route: 058

REACTIONS (7)
  - Memory impairment [Unknown]
  - Drug ineffective [Unknown]
  - Renal cancer [Not Recovered/Not Resolved]
  - Nervousness [Unknown]
  - Product use issue [Unknown]
  - Blood glucose fluctuation [Unknown]
  - Headache [Unknown]

NARRATIVE: CASE EVENT DATE: 20181121
